FAERS Safety Report 25524474 (Version 1)
Quarter: 2025Q3

REPORT INFORMATION
  Report Type: Spontaneous
  Country: CN (occurrence: CN)
  Receive Date: 20250707
  Receipt Date: 20250707
  Transmission Date: 20251020
  Serious: Yes (Hospitalization)
  Sender: SANOFI AVENTIS
  Company Number: CN-SA-2025SA186775

PATIENT
  Age: 68 Year
  Sex: Female
  Weight: 50 kg

DRUGS (2)
  1. INSULIN GLARGINE\LIXISENATIDE [Suspect]
     Active Substance: INSULIN GLARGINE\LIXISENATIDE
     Indication: Blood glucose increased
     Dosage: 10 IU, QD
     Route: 058
     Dates: start: 20250624, end: 20250625
  2. INSULIN GLARGINE\LIXISENATIDE [Suspect]
     Active Substance: INSULIN GLARGINE\LIXISENATIDE
     Dosage: 9 IU, QD
     Route: 058
     Dates: start: 20250625

REACTIONS (4)
  - Decreased appetite [Recovering/Resolving]
  - Asthenia [Recovering/Resolving]
  - Nausea [Recovering/Resolving]
  - Vomiting [Recovering/Resolving]

NARRATIVE: CASE EVENT DATE: 20250624
